FAERS Safety Report 9517872 (Version 1)
Quarter: 2013Q3

REPORT INFORMATION
  Report Type: Spontaneous
  Country: US (occurrence: None)
  Receive Date: 20130910
  Receipt Date: 20130910
  Transmission Date: 20140515
  Serious: Yes (Disabling)
  Sender: FDA-Public Use
  Company Number: None

PATIENT
  Age: 74 Year
  Sex: Female
  Weight: 79.83 kg

DRUGS (4)
  1. FERREX 150 FORTE PLUS [Suspect]
     Indication: POST PROCEDURAL HAEMORRHAGE
     Dosage: 1 PILL
     Route: 048
     Dates: start: 20130711, end: 20130816
  2. IRBESARTAN [Concomitant]
  3. LEVOTHYROXIN [Concomitant]
  4. CENTRUM SILVER VITAMIN [Concomitant]

REACTIONS (6)
  - Dyspnoea [None]
  - Dyspnoea [None]
  - Gait disturbance [None]
  - Rash pruritic [None]
  - Local swelling [None]
  - Product formulation issue [None]
